FAERS Safety Report 15271782 (Version 2)
Quarter: 2018Q3

REPORT INFORMATION
  Report Type: Spontaneous
  Country: US (occurrence: US)
  Receive Date: 20180813
  Receipt Date: 20180828
  Transmission Date: 20181010
  Serious: Yes (Hospitalization, Other)
  Sender: FDA-Public Use
  Company Number: US-UNITED THERAPEUTICS-UNT-2018-010718

PATIENT
  Age: 62 Year
  Sex: Female
  Weight: 88.89 kg

DRUGS (3)
  1. ADEMPAS [Concomitant]
     Active Substance: RIOCIGUAT
     Indication: PRODUCT USED FOR UNKNOWN INDICATION
     Route: 065
  2. REMODULIN [Suspect]
     Active Substance: TREPROSTINIL
     Indication: PULMONARY ARTERIAL HYPERTENSION
     Dosage: 0.013 ?G/KG, CONTINUING
     Route: 041
     Dates: start: 20180308
  3. REMODULIN [Suspect]
     Active Substance: TREPROSTINIL
     Dosage: 0.015 ?G/KG, CONTINUING
     Route: 041

REACTIONS (3)
  - Infusion site erythema [Unknown]
  - Infusion site discharge [Unknown]
  - Device related infection [Unknown]

NARRATIVE: CASE EVENT DATE: 201807
